FAERS Safety Report 4402095-8 (Version None)
Quarter: 2004Q3

REPORT INFORMATION
  Report Type: 
  Country: None (occurrence: None)
  Receive Date: 20040714
  Receipt Date: 20040705
  Transmission Date: 20050211
  Serious: Yes (Hospitalization)
  Sender: FDA-Public Use
  Company Number: 01P-163-0112767-00

PATIENT
  Age: 28 Year
  Sex: Male

DRUGS (1)
  1. DEPAKOTE [Suspect]
     Indication: IMPULSE-CONTROL DISORDER
     Dosage: 500 MG, EVERY NIGHT, PER ORAL
     Route: 048
     Dates: start: 20000101, end: 20011026

REACTIONS (4)
  - BLOOD TESTOSTERONE DECREASED [None]
  - MENTAL DISORDER [None]
  - OSTEOPENIA [None]
  - SEXUAL DYSFUNCTION [None]
